FAERS Safety Report 7889600-4 (Version None)
Quarter: 2011Q4

REPORT INFORMATION
  Report Type: 
  Country: None (occurrence: None)
  Receive Date: 20111103
  Receipt Date: 20110718
  Transmission Date: 20120403
  Serious: No
  Sender: FDA-Public Use
  Company Number: US-BRISTOL-MYERS SQUIBB COMPANY-15909047

PATIENT
  Age: 22 Year
  Sex: Female

DRUGS (1)
  1. KENALOG-40 [Suspect]
     Indication: NASAL POLYPS
     Dosage: LAST INF:06JUL2011
     Dates: start: 20060101

REACTIONS (1)
  - DEHYDROEPIANDROSTERONE INCREASED [None]
